FAERS Safety Report 8247595 (Version 5)
Quarter: 2012Q4

REPORT INFORMATION
  Report Type: 
  Country: JP (occurrence: JP)
  Receive Date: 20111116
  Receipt Date: 20120924
  Transmission Date: 20130627
  Serious: Yes (Hospitalization, Other)
  Sender: FDA-Public Use
  Company Number: PHHY2011JP100057

PATIENT
  Age: 75 Year
  Sex: Male
  Weight: 62 kg

DRUGS (5)
  1. AFINITOR [Suspect]
     Indication: METASTATIC RENAL CELL CARCINOMA
     Dosage: 10 mg, Daily
     Route: 048
     Dates: start: 20101227, end: 20110115
  2. AFINITOR [Suspect]
     Dosage: 5 mg, Daily
     Route: 048
     Dates: start: 20110115, end: 20110215
  3. AFINITOR [Suspect]
     Dosage: 5 mg, Daily
     Route: 048
     Dates: start: 20110226
  4. HIRUDOID [Concomitant]
     Indication: PROPHYLAXIS
     Route: 062
     Dates: start: 20101227, end: 20110407
  5. ARTIST [Concomitant]
     Dosage: 10 mg, daily
     Dates: start: 20111026

REACTIONS (4)
  - Ejection fraction decreased [Recovering/Resolving]
  - Left ventricular dysfunction [Recovering/Resolving]
  - Ventricular hypokinesia [Unknown]
  - Hyperglycaemia [Recovered/Resolved]
